FAERS Safety Report 5645885-6 (Version None)
Quarter: 2008Q1

REPORT INFORMATION
  Report Type: 
  Country: None (occurrence: None)
  Receive Date: 20080229
  Receipt Date: 20080222
  Transmission Date: 20080703
  Serious: Yes (Death, Life-Threatening, Hospitalization)
  Sender: FDA-Public Use
  Company Number: US-GILEAD-2008-0015015

PATIENT
  Sex: Male

DRUGS (1)
  1. LETAIRIS [Suspect]
     Indication: PULMONARY HYPERTENSION
     Route: 048
     Dates: start: 20070701

REACTIONS (16)
  - BLOOD CHLORIDE DECREASED [None]
  - BLOOD LACTIC ACID ABNORMAL [None]
  - BLOOD SODIUM DECREASED [None]
  - DIALYSIS [None]
  - FIBRIN D DIMER INCREASED [None]
  - GANGRENE [None]
  - HYPOTENSION [None]
  - HYPOXIA [None]
  - NO THERAPEUTIC RESPONSE [None]
  - PNEUMONIA [None]
  - REFUSAL OF TREATMENT BY PATIENT [None]
  - RENAL FAILURE [None]
  - RESPIRATORY DISTRESS [None]
  - RIGHT VENTRICULAR FAILURE [None]
  - SEPSIS [None]
  - TREATMENT NONCOMPLIANCE [None]
